FAERS Safety Report 16464378 (Version 2)
Quarter: 2019Q3

REPORT INFORMATION
  Report Type: Report from Study
  Country: TW (occurrence: TW)
  Receive Date: 20190621
  Receipt Date: 20190715
  Transmission Date: 20191004
  Serious: Yes (Hospitalization)
  Sender: FDA-Public Use
  Company Number: TW-PFIZER INC-2019251922

PATIENT
  Age: 57 Year
  Sex: Female
  Weight: 45 kg

DRUGS (5)
  1. ALPRAZOLAM. [Concomitant]
     Active Substance: ALPRAZOLAM
     Indication: INSOMNIA
     Dosage: 0.5 MG, 1X/DAY (QN)
     Route: 048
     Dates: start: 20180103
  2. PF-06463922 [Suspect]
     Active Substance: LORLATINIB
     Indication: NON-SMALL CELL LUNG CANCER
     Dosage: 100 MG, ONCE DAILY FOR 21 DAY CYCLIC
     Route: 048
     Dates: start: 20160817, end: 20190612
  3. METOCLOPRAMIDE HCL [Concomitant]
     Active Substance: METOCLOPRAMIDE HYDROCHLORIDE
     Indication: CONSTIPATION
     Dosage: 5 MG, 3X/DAY (TID)
     Route: 048
     Dates: start: 20190522
  4. INDERAL [Concomitant]
     Active Substance: PROPRANOLOL HYDROCHLORIDE
     Indication: MITRAL VALVE PROLAPSE
     Dosage: 10 MG, 3X/DAY (TID)
     Route: 048
     Dates: start: 20190315
  5. SENNAPUR [Concomitant]
     Indication: CONSTIPATION
     Dosage: 25 MG, 1X/DAY (QD)
     Route: 048
     Dates: start: 20190410

REACTIONS (1)
  - Pneumonia [Recovered/Resolved]

NARRATIVE: CASE EVENT DATE: 20190610
